FAERS Safety Report 7131250-1 (Version None)
Quarter: 2010Q4

REPORT INFORMATION
  Report Type: 
  Country: None (occurrence: None)
  Receive Date: 20101201
  Receipt Date: 20101129
  Transmission Date: 20110411
  Serious: Yes (Hospitalization)
  Sender: FDA-Public Use
  Company Number: US-BRISTOL-MYERS SQUIBB COMPANY-15411242

PATIENT
  Age: 78 Year
  Sex: Female
  Weight: 79 kg

DRUGS (10)
  1. ORENCIA [Suspect]
     Dosage: 2 TREATMENTS ONE ON 22OCT2010 AND 05NOV2014
     Dates: start: 20101022
  2. PREDNISONE [Concomitant]
  3. METHOTREXATE [Concomitant]
  4. CALCIUM [Concomitant]
  5. HYDROCHLOROTHIAZIDE [Concomitant]
  6. TOPROL-XL [Concomitant]
  7. NORVASC [Concomitant]
  8. ALLEGRA [Concomitant]
  9. ADVAIR [Concomitant]
     Route: 055
  10. PEPCID [Concomitant]

REACTIONS (1)
  - HIP FRACTURE [None]
